FAERS Safety Report 7835152-4 (Version None)
Quarter: 2011Q4

REPORT INFORMATION
  Report Type: 
  Country: None (occurrence: None)
  Receive Date: 20111024
  Receipt Date: 20111019
  Transmission Date: 20120403
  Serious: Yes (Death)
  Sender: FDA-Public Use
  Company Number: PHHY2011DK92181

PATIENT
  Sex: Female

DRUGS (4)
  1. ISONIAZID ^DAK^ [Concomitant]
     Dosage: UNK
     Route: 048
  2. MYAMBUTOL [Suspect]
     Dosage: 3 DF, UNK
     Route: 048
  3. RIFAMPICIN [Suspect]
     Dosage: 450 MG, UNK
     Route: 048
  4. PYRIDOXINE ^DAK^ [Concomitant]
     Dosage: UNK
     Route: 048

REACTIONS (2)
  - ACUTE RESPIRATORY FAILURE [None]
  - HEPATIC FUNCTION ABNORMAL [None]
